FAERS Safety Report 8066525-5 (Version None)
Quarter: 2012Q1

REPORT INFORMATION
  Report Type: 
  Country: None (occurrence: None)
  Receive Date: 20120124
  Receipt Date: 20120112
  Transmission Date: 20120608
  Serious: Yes (Other)
  Sender: FDA-Public Use
  Company Number: PHHY2012NL002907

PATIENT
  Sex: Male
  Weight: 43 kg

DRUGS (4)
  1. VORICONAZOLE [Suspect]
     Dosage: 600 MG, TID
  2. CYCLOSPORINE [Suspect]
     Indication: TRANSPLANT
     Dosage: 50 MG, BID
     Dates: start: 20111024
  3. VORICONAZOLE [Suspect]
     Dosage: 400 MG, TID
  4. VORICONAZOLE [Suspect]
     Indication: BRONCHOPULMONARY ASPERGILLOSIS
     Dosage: 800 MG, TID
     Dates: start: 20111202

REACTIONS (7)
  - TOXICITY TO VARIOUS AGENTS [None]
  - DIARRHOEA [None]
  - PLEURAL EFFUSION [None]
  - GRAFT VERSUS HOST DISEASE IN INTESTINE [None]
  - OEDEMA PERIPHERAL [None]
  - TONGUE DISORDER [None]
  - HEPATIC ENZYME INCREASED [None]
